FAERS Safety Report 10101363 (Version 1)
Quarter: 2014Q2

REPORT INFORMATION
  Report Type: Spontaneous
  Country: US (occurrence: US)
  Receive Date: 20140424
  Receipt Date: 20140424
  Transmission Date: 20141212
  Serious: No
  Sender: FDA-Public Use
  Company Number: US-PFIZER INC-2014113819

PATIENT
  Age: 58 Year
  Sex: Female
  Weight: 45.35 kg

DRUGS (3)
  1. ZOLOFT [Suspect]
     Indication: ANXIETY
     Dosage: 25 MG, DAILY
     Dates: start: 201312
  2. ZOLOFT [Suspect]
     Dosage: 50 MG, DAILY
  3. ZOLOFT [Suspect]
     Dosage: 62.5 MG, DAILY

REACTIONS (1)
  - Drug ineffective [Unknown]
